FAERS Safety Report 10023105 (Version 13)
Quarter: 2016Q1

REPORT INFORMATION
  Report Type: Spontaneous
  Country: CA (occurrence: CA)
  Receive Date: 20140320
  Receipt Date: 20160205
  Transmission Date: 20160525
  Serious: Yes (Hospitalization, Other)
  Sender: FDA-Public Use
  Company Number: CA-ROCHE-1367988

PATIENT
  Age: 66 Year
  Sex: Female

DRUGS (11)
  1. XOLAIR [Suspect]
     Active Substance: OMALIZUMAB
     Indication: ASTHMA
     Route: 058
     Dates: start: 20130716
  2. XOLAIR [Suspect]
     Active Substance: OMALIZUMAB
     Route: 058
     Dates: start: 20141126
  3. VENTOLINE [Concomitant]
     Active Substance: ALBUTEROL
  4. ALVESCO [Concomitant]
     Active Substance: CICLESONIDE
  5. XOLAIR [Suspect]
     Active Substance: OMALIZUMAB
     Route: 058
     Dates: start: 20150121
  6. XOLAIR [Suspect]
     Active Substance: OMALIZUMAB
     Route: 058
     Dates: start: 20150708
  7. ADVAIR HFA [Concomitant]
     Active Substance: FLUTICASONE PROPIONATE\SALMETEROL XINAFOATE
  8. XOLAIR [Suspect]
     Active Substance: OMALIZUMAB
     Route: 058
     Dates: start: 20140114
  9. SPIRIVA [Concomitant]
     Active Substance: TIOTROPIUM BROMIDE MONOHYDRATE
  10. DAXAS [Concomitant]
     Active Substance: ROFLUMILAST
  11. XOLAIR [Suspect]
     Active Substance: OMALIZUMAB
     Route: 058
     Dates: start: 20140213

REACTIONS (13)
  - Blood pressure increased [Recovered/Resolved]
  - Feeling abnormal [Unknown]
  - Respiratory distress [Unknown]
  - Middle insomnia [Unknown]
  - Forced vital capacity decreased [Unknown]
  - Forced expiratory volume decreased [Unknown]
  - Cough [Unknown]
  - Oropharyngeal pain [Unknown]
  - Malaise [Unknown]
  - Wheezing [Unknown]
  - Asthma [Unknown]
  - Chest discomfort [Unknown]
  - Chest pain [Unknown]

NARRATIVE: CASE EVENT DATE: 201401
